FAERS Safety Report 4470807-3 (Version None)
Quarter: 2004Q4

REPORT INFORMATION
  Report Type: 
  Country: None (occurrence: None)
  Receive Date: 20041005
  Receipt Date: 20040923
  Transmission Date: 20050328
  Serious: Yes (Other)
  Sender: FDA-Public Use
  Company Number: HQWYE335827SEP04

PATIENT
  Sex: Female

DRUGS (2)
  1. EFFEXOR [Suspect]
     Indication: DEPRESSION
     Dosage: 75 MG 1X PER 1 DAY, ORAL
     Route: 048
     Dates: start: 20040301
  2. ALTACE (RAMIPRIL) [Concomitant]

REACTIONS (7)
  - CONDITION AGGRAVATED [None]
  - ERYTHEMA [None]
  - FLUSHING [None]
  - HYPERTENSION [None]
  - NOREPINEPHRINE INCREASED [None]
  - PHAEOCHROMOCYTOMA [None]
  - TACHYCARDIA [None]
